FAERS Safety Report 6778754-9 (Version None)
Quarter: 2010Q2

REPORT INFORMATION
  Report Type: 
  Country: None (occurrence: None)
  Receive Date: 20100618
  Receipt Date: 20100609
  Transmission Date: 20101027
  Serious: Yes (Hospitalization)
  Sender: FDA-Public Use
  Company Number: NL-TEVA-237387ISR

PATIENT
  Sex: Female

DRUGS (9)
  1. CLOMIPRAMINE [Suspect]
     Dates: start: 19980101, end: 20100304
  2. FENTANYL [Suspect]
     Indication: PAIN
     Dates: start: 20100315, end: 20100405
  3. PREDNISOLONE [Concomitant]
     Dates: start: 20080101
  4. CLORAZEPATE DIPOTASSIUM [Concomitant]
     Dates: start: 19980101
  5. HYDROCHLOROTHIAZIDE [Concomitant]
     Dates: start: 20070101
  6. ATORVASTATIN CALCIUM [Concomitant]
     Dates: start: 20080801
  7. LOSARTAN POTASSIUM [Concomitant]
     Dates: start: 20040101
  8. CELIPROLOL HYDROCHLORIDE [Concomitant]
     Dates: start: 20070101
  9. ISOSORBIDE MONONITRATE [Concomitant]
     Dates: start: 20080717

REACTIONS (1)
  - SEROTONIN SYNDROME [None]
